FAERS Safety Report 7806620-6 (Version None)
Quarter: 2011Q4

REPORT INFORMATION
  Report Type: 
  Country: None (occurrence: None)
  Receive Date: 20111005
  Receipt Date: 20110923
  Transmission Date: 20120403
  Serious: Yes (Hospitalization, Other)
  Sender: FDA-Public Use
  Company Number: DSA_47712_2011

PATIENT
  Age: 79 Year
  Sex: Male

DRUGS (5)
  1. VENLAFAXINE [Suspect]
     Indication: MAJOR DEPRESSION
     Dosage: (225 MG QD), (75 MG QD)
  2. DONEPEZIL HCL [Suspect]
     Indication: DEMENTIA
     Dosage: (10 MG QD)
  3. MIRTAZAPINE [Suspect]
     Indication: INSOMNIA
     Dosage: (30 MG QD)
  4. QUETIAPINE [Suspect]
     Indication: AGITATION
     Dosage: (12.5 MG BID)
  5. QUETIAPINE [Suspect]
     Indication: DELUSION
     Dosage: (12.5 MG BID)

REACTIONS (1)
  - SEROTONIN SYNDROME [None]
